FAERS Safety Report 7178822-6 (Version None)
Quarter: 2010Q4

REPORT INFORMATION
  Report Type: 
  Country: None (occurrence: None)
  Receive Date: 20101221
  Receipt Date: 20101215
  Transmission Date: 20110411
  Serious: Yes (Life-Threatening)
  Sender: FDA-Public Use
  Company Number: IT-JNJFOC-20101205425

PATIENT
  Age: 76 Year
  Sex: Male

DRUGS (10)
  1. TAVANIC [Suspect]
     Indication: PYREXIA
     Route: 041
  2. UNASYN [Suspect]
     Indication: PYREXIA
     Route: 041
  3. FERLIXIT [Concomitant]
     Route: 065
  4. LANSOPRAZOLE [Concomitant]
     Route: 048
  5. FLUIMUCIL [Concomitant]
     Route: 048
  6. BISOPROLOL [Concomitant]
     Route: 048
  7. NITRODUR II [Concomitant]
     Route: 065
  8. ASPIRIN [Concomitant]
     Route: 048
  9. LEVEMIR [Concomitant]
     Route: 065
  10. CLEXANE [Concomitant]
     Route: 065

REACTIONS (3)
  - ERYTHEMA [None]
  - HYPERSENSITIVITY [None]
  - PERIORBITAL OEDEMA [None]
